FAERS Safety Report 8276109-1 (Version None)
Quarter: 2012Q2

REPORT INFORMATION
  Report Type: 
  Country: None (occurrence: None)
  Receive Date: 20120412
  Receipt Date: 20120329
  Transmission Date: 20120825
  Serious: Yes (Other)
  Sender: FDA-Public Use
  Company Number: GB-MYLANLABS-2012S1005572

PATIENT
  Age: 71 Year
  Sex: Female

DRUGS (13)
  1. BISOPROLOL FUMARATE [Concomitant]
     Indication: PRODUCT USED FOR UNKNOWN INDICATION
  2. ASPIRIN [Concomitant]
     Indication: PRODUCT USED FOR UNKNOWN INDICATION
  3. NITROFURANTOIN [Concomitant]
     Indication: URINARY TRACT INFECTION
  4. ATORVASTATIN [Concomitant]
     Indication: PRODUCT USED FOR UNKNOWN INDICATION
  5. MAGNESIUM ASPARTATE [Suspect]
     Indication: HYPOMAGNESAEMIA
     Route: 048
     Dates: start: 20120113, end: 20120209
  6. CIPROFLOXACIN HYDROCHLORIDE [Suspect]
     Route: 041
     Dates: start: 20120111, end: 20120206
  7. FERROUS SULFATE TAB [Concomitant]
     Indication: PRODUCT USED FOR UNKNOWN INDICATION
  8. TEICOPLANIN [Concomitant]
     Indication: PRODUCT USED FOR UNKNOWN INDICATION
     Route: 041
     Dates: start: 20120109, end: 20120110
  9. CIPROFLOXACIN HYDROCHLORIDE [Suspect]
     Indication: PRODUCT USED FOR UNKNOWN INDICATION
     Route: 048
     Dates: start: 20120110, end: 20120111
  10. PIPERACILLIN AND TAZOBACTAM [Suspect]
     Indication: PRODUCT USED FOR UNKNOWN INDICATION
     Route: 041
     Dates: start: 20120221, end: 20120222
  11. LANSOPRAZOLE [Concomitant]
     Indication: PRODUCT USED FOR UNKNOWN INDICATION
  12. MAGNESIUM SULFATE [Concomitant]
     Indication: HYPOMAGNESAEMIA
     Route: 041
     Dates: start: 20120107, end: 20120128
  13. NICORANDIL [Concomitant]
     Indication: PRODUCT USED FOR UNKNOWN INDICATION

REACTIONS (5)
  - RASH ERYTHEMATOUS [None]
  - RASH MACULO-PAPULAR [None]
  - SKIN WARM [None]
  - PRURITUS [None]
  - PARAESTHESIA [None]
